FAERS Safety Report 5058439-X (Version None)
Quarter: 2006Q3

REPORT INFORMATION
  Report Type: 
  Country: None (occurrence: None)
  Receive Date: 20060721
  Receipt Date: 20060714
  Transmission Date: 20061208
  Serious: Yes (Death)
  Sender: FDA-Public Use
  Company Number: PHEH2006US09097

PATIENT
  Age: 76 Year
  Sex: Male

DRUGS (5)
  1. EXJADE [Suspect]
     Indication: BLOOD IRON
     Dosage: 2000 MG, QD
     Route: 048
     Dates: start: 20060620, end: 20060702
  2. ASPIRIN [Concomitant]
     Indication: ARTERIOSCLEROSIS CORONARY ARTERY
     Dosage: 81 MG, QD
     Route: 048
  3. PLAVIX [Concomitant]
     Indication: ARTERIOSCLEROSIS CORONARY ARTERY
     Dosage: 75 MG, QD
     Route: 048
     Dates: start: 20050901
  4. IMDUR [Concomitant]
     Indication: ARTERIOSCLEROSIS CORONARY ARTERY
     Dosage: 30 MG, QD
  5. LASIX [Concomitant]
     Indication: ARTERIOSCLEROSIS CORONARY ARTERY
     Dosage: 40 MG, QD

REACTIONS (8)
  - BONE MARROW FAILURE [None]
  - COMPUTERISED TOMOGRAM ABNORMAL [None]
  - MUCORMYCOSIS [None]
  - NUCLEAR MAGNETIC RESONANCE IMAGING ABNORMAL [None]
  - ORBITAL INFECTION [None]
  - PANCYTOPENIA [None]
  - PAROPHTHALMIA [None]
  - SINUSITIS [None]
